FAERS Safety Report 4503394-1 (Version None)
Quarter: 2004Q4

REPORT INFORMATION
  Report Type: 
  Country: None (occurrence: None)
  Receive Date: 20041117
  Receipt Date: 20041109
  Transmission Date: 20050328
  Serious: Yes (Other)
  Sender: FDA-Public Use
  Company Number: GB-GLAXOSMITHKLINE-B0351001A

PATIENT
  Age: 83 Year
  Sex: Female

DRUGS (3)
  1. ALKERAN [Suspect]
     Route: 065
     Dates: start: 20010101
  2. STEROIDS [Concomitant]
     Route: 065
  3. CONCURRENT MEDICATIONS [Concomitant]
     Route: 065

REACTIONS (3)
  - DIARRHOEA [None]
  - SYNCOPE [None]
  - VOMITING [None]
